FAERS Safety Report 4959503-3 (Version None)
Quarter: 2006Q1

REPORT INFORMATION
  Report Type: 
  Country: None (occurrence: None)
  Receive Date: 20060331
  Receipt Date: 20051114
  Transmission Date: 20060701
  Serious: Yes (Hospitalization)
  Sender: FDA-Public Use
  Company Number: US-MERCK-0511USA02499

PATIENT
  Age: 50 Year
  Sex: Male
  Weight: 93 kg

DRUGS (13)
  1. VIOXX [Suspect]
     Indication: BACK PAIN
     Route: 048
     Dates: start: 19990701, end: 20040930
  2. VIOXX [Suspect]
     Indication: PAIN IN EXTREMITY
     Route: 048
     Dates: start: 19990701, end: 20040930
  3. FLEXERIL [Concomitant]
     Indication: PAIN
     Route: 065
     Dates: start: 20010101
  4. CELEBREX [Concomitant]
     Indication: PAIN
     Route: 065
     Dates: start: 20000101, end: 20010101
  5. MORPHINE [Concomitant]
     Indication: PAIN
     Route: 065
     Dates: start: 20050301
  6. DARVOCET [Concomitant]
     Indication: PAIN
     Route: 065
     Dates: start: 19970101
  7. HYDROCODONE BITARTRATE [Concomitant]
     Indication: PAIN
     Route: 065
     Dates: start: 19970101
  8. NAPROXEN [Concomitant]
     Indication: PAIN
     Route: 065
     Dates: start: 19970719, end: 19970830
  9. NAPROXEN [Concomitant]
     Route: 065
     Dates: start: 19970101, end: 20010101
  10. CYCLOBENZAPRINE HYDROCHLORIDE [Concomitant]
     Indication: PAIN
     Route: 065
     Dates: start: 19970101, end: 20010101
  11. DICLOFENAC SODIUM [Concomitant]
     Indication: PAIN
     Route: 065
     Dates: start: 20020101
  12. TIZANIDINE HYDROCHLORIDE [Concomitant]
     Indication: PAIN
     Route: 065
     Dates: start: 20010101
  13. ZOLOFT [Concomitant]
     Indication: DEPRESSION
     Route: 065

REACTIONS (2)
  - DEEP VEIN THROMBOSIS [None]
  - POOR PERIPHERAL CIRCULATION [None]
